FAERS Safety Report 6446079-7 (Version None)
Quarter: 2009Q4

REPORT INFORMATION
  Report Type: 
  Country: None (occurrence: None)
  Receive Date: 20091119
  Receipt Date: 20091109
  Transmission Date: 20100525
  Serious: Yes (Hospitalization)
  Sender: FDA-Public Use
  Company Number: US-JNJFOC-20090901289

PATIENT
  Sex: Female
  Weight: 107.96 kg

DRUGS (7)
  1. REMICADE [Suspect]
     Route: 042
     Dates: start: 20070601, end: 20090903
  2. REMICADE [Suspect]
     Indication: RHEUMATOID ARTHRITIS
     Route: 042
     Dates: start: 20070601, end: 20090903
  3. ZOCOR [Concomitant]
     Indication: HYPERLIPIDAEMIA
  4. MOBIC [Concomitant]
     Indication: OSTEOARTHRITIS
  5. FLEXERIL [Concomitant]
     Dosage: AS NEEDED
  6. AMBIEN [Concomitant]
     Indication: INSOMNIA
  7. LEXAPRO [Concomitant]
     Indication: DEPRESSION

REACTIONS (1)
  - CHOLECYSTECTOMY [None]
